FAERS Safety Report 5776795-1 (Version None)
Quarter: 2008Q2

REPORT INFORMATION
  Report Type: 
  Country: None (occurrence: None)
  Receive Date: 20080616
  Receipt Date: 20080603
  Transmission Date: 20081010
  Serious: Yes (Other)
  Sender: FDA-Public Use
  Company Number: DSJ-2008-06770

PATIENT
  Age: 71 Year
  Sex: Female

DRUGS (3)
  1. OLMESARTAN MEDOXOMIL [Suspect]
     Indication: BLOOD PRESSURE INADEQUATELY CONTROLLED
     Dosage: 5 MG, PER ORAL
     Route: 048
     Dates: start: 20080218, end: 20080601
  2. ATELEC (CLINIDIPINE) (CLINIDIPINE) [Concomitant]
  3. BAYSLOWTH  (VOGLIBOSE) (VOGLIBOSE) [Concomitant]

REACTIONS (1)
  - PLATELET COUNT DECREASED [None]
